FAERS Safety Report 14567168 (Version 3)
Quarter: 2018Q2

REPORT INFORMATION
  Report Type: Spontaneous
  Country: US (occurrence: US)
  Receive Date: 20180223
  Receipt Date: 20180402
  Transmission Date: 20180711
  Serious: Yes (Hospitalization, Other)
  Sender: FDA-Public Use
  Company Number: US-AMGEN-USASP2018022245

PATIENT
  Age: 62 Year
  Sex: Female
  Weight: 59.41 kg

DRUGS (13)
  1. PROAIR HFA [Concomitant]
     Active Substance: ALBUTEROL SULFATE
     Dosage: UNK (108 (90 BASE) MCG/ACT)
  2. LEVOTHYROXINE SODIUM. [Concomitant]
     Active Substance: LEVOTHYROXINE SODIUM
     Dosage: 150 MUG, QD
  3. BONIVA [Suspect]
     Active Substance: IBANDRONATE SODIUM
     Indication: PRODUCT USED FOR UNKNOWN INDICATION
     Dosage: UNK
     Route: 065
  4. VITAMIN D [Concomitant]
     Active Substance: CHOLECALCIFEROL
     Indication: VITAMIN D DEFICIENCY
     Dosage: 50000 UNIT, QWK
  5. HYOSCYAMINE SULFATE. [Concomitant]
     Active Substance: HYOSCYAMINE SULFATE
     Dosage: 0.375 MG, QD
  6. NADOLOL. [Concomitant]
     Active Substance: NADOLOL
     Dosage: 40 MG, QD
  7. BUTALBITAL APAP CAFFEINE [Concomitant]
     Dosage: UNK MG, UNK
     Route: 048
  8. PROLIA [Suspect]
     Active Substance: DENOSUMAB
     Indication: OSTEOPOROSIS
     Dosage: Q6MO
     Route: 058
     Dates: start: 20150323, end: 20170303
  9. PROPRANOLOL HCL [Concomitant]
     Active Substance: PROPRANOLOL HYDROCHLORIDE
     Dosage: 80 MG, QD
     Route: 048
  10. DESOXYN [Concomitant]
     Active Substance: METHAMPHETAMINE HYDROCHLORIDE
     Dosage: 5 MG, BID
     Route: 048
  11. PRISTIQ EXTENDED-RELEASE [Concomitant]
     Active Substance: DESVENLAFAXINE SUCCINATE
     Dosage: 50 MG XR 24 H TAB
  12. IMITREX [Concomitant]
     Active Substance: SUMATRIPTAN SUCCINATE
     Dosage: 25 MG, UNK
  13. FIORICET WITH CODEINE [Concomitant]
     Active Substance: ACETAMINOPHEN\BUTALBITAL\CAFFEINE\CODEINE PHOSPHATE
     Dosage: UNK UNK, AS NECESSARY (PM)

REACTIONS (13)
  - Tooth loss [Unknown]
  - Muscle spasms [Unknown]
  - Vertigo [Unknown]
  - Rib fracture [Unknown]
  - Loss of consciousness [Unknown]
  - Painful respiration [Unknown]
  - Delusional disorder, unspecified type [Unknown]
  - Tooth fracture [Unknown]
  - Contusion [Unknown]
  - Amnesia [Unknown]
  - Syncope [Unknown]
  - Weight decreased [Unknown]
  - Adverse drug reaction [Unknown]

NARRATIVE: CASE EVENT DATE: 201503
